FAERS Safety Report 7180547-8 (Version None)
Quarter: 2010Q4

REPORT INFORMATION
  Report Type: 
  Country: None (occurrence: None)
  Receive Date: 20101221
  Receipt Date: 20101215
  Transmission Date: 20110411
  Serious: Yes (Other)
  Sender: FDA-Public Use
  Company Number: DE-PFIZER INC-2010175687

PATIENT
  Age: 28 Year
  Sex: Male

DRUGS (8)
  1. PANTOPRAZOLE [Suspect]
     Indication: GASTRIC DISORDER
     Dosage: 40 MG
     Route: 065
     Dates: start: 20100801, end: 20101125
  2. PANTOPRAZOLE [Suspect]
     Dosage: 40 MG
     Dates: start: 20100801, end: 20101125
  3. PROGRAF [Concomitant]
     Dosage: 2 MG, 2X/DAY
     Dates: start: 20030101
  4. BELOC COMP [Concomitant]
     Dosage: 0.5 MG, 2X/DAY
     Dates: start: 20030101
  5. DIAZEPAM [Concomitant]
     Dosage: 1 MG, 2X/DAY
     Dates: start: 20030101
  6. ACETYLSALICYLIC ACID [Concomitant]
     Dosage: 100 MG, 1X/DAY
     Dates: start: 20030101
  7. VIGANTOLETTEN ^BAYER^ [Concomitant]
     Dosage: 1000 MG, 1X/DAY
     Dates: start: 20030101
  8. MAGNESIUM ^CINFA^ [Concomitant]
     Dosage: 6 DOSAGE FORMS (2 DOSAGE FORMS, 3 IN 1 D)
     Dates: start: 20030101

REACTIONS (2)
  - BLOOD CREATININE INCREASED [None]
  - NAUSEA [None]
